FAERS Safety Report 5508714-7 (Version None)
Quarter: 2007Q4

REPORT INFORMATION
  Report Type: 
  Country: None (occurrence: None)
  Receive Date: 20071107
  Receipt Date: 20071029
  Transmission Date: 20080405
  Serious: Yes (Other)
  Sender: FDA-Public Use
  Company Number: JP-ASTRAZENECA-2007AP06920

PATIENT
  Age: 78 Year
  Sex: Male

DRUGS (4)
  1. CRESTOR [Suspect]
     Indication: HYPERCHOLESTEROLAEMIA
     Route: 048
     Dates: start: 20070501, end: 20071022
  2. BLOPRESS [Concomitant]
     Route: 048
  3. ASPIRIN [Concomitant]
     Route: 048
  4. NORVASC [Concomitant]
     Route: 048

REACTIONS (1)
  - LIVER DISORDER [None]
